FAERS Safety Report 25184151 (Version 1)
Quarter: 2025Q2

REPORT INFORMATION
  Report Type: Spontaneous
  Country: US (occurrence: None)
  Receive Date: 20250410
  Receipt Date: 20250410
  Transmission Date: 20250717
  Serious: Yes (Hospitalization)
  Sender: FDA-CTU
  Company Number: None

PATIENT
  Age: 57 Year
  Sex: Female
  Weight: 74.6 kg

DRUGS (3)
  1. SPRYCEL [Suspect]
     Active Substance: DASATINIB
     Dates: end: 20250406
  2. PREDNISONE [Suspect]
     Active Substance: PREDNISONE
     Dates: end: 20250329
  3. VINCRISTINE SULFATE [Suspect]
     Active Substance: VINCRISTINE SULFATE
     Dates: end: 20250325

REACTIONS (6)
  - Diarrhoea [None]
  - Vomiting [None]
  - Blood pressure decreased [None]
  - Pneumonia [None]
  - Blood creatinine increased [None]
  - Dialysis [None]

NARRATIVE: CASE EVENT DATE: 20250406
